FAERS Safety Report 5749987-5 (Version None)
Quarter: 2008Q2

REPORT INFORMATION
  Report Type: 
  Country: None (occurrence: None)
  Receive Date: 20080527
  Receipt Date: 20080513
  Transmission Date: 20081010
  Serious: Yes (Other)
  Sender: FDA-Public Use
  Company Number: FR-ROCHE-529628

PATIENT
  Sex: Male

DRUGS (7)
  1. RIBAVIRIN [Suspect]
     Indication: HEPATITIS C VIRUS
     Route: 065
  2. INTERFERON ALFA [Suspect]
     Indication: HEPATITIS C VIRUS
     Route: 065
  3. INTERFERON ALFA [Suspect]
     Route: 065
  4. ZIDOVUDINE [Concomitant]
     Dates: start: 19960501
  5. ZIDOVUDINE [Concomitant]
  6. DIDANOSINE [Concomitant]
     Dates: start: 19960501
  7. SAQUINAVIR FORMULATION UNKNOWN [Concomitant]
     Dates: start: 19960501

REACTIONS (7)
  - ANAEMIA [None]
  - ASCITES [None]
  - HEPATIC STEATOSIS [None]
  - HYPERLACTACIDAEMIA [None]
  - MITOCHONDRIAL TOXICITY [None]
  - PANCREATITIS [None]
  - TYPE 1 DIABETES MELLITUS [None]
